FAERS Safety Report 8179837-1 (Version None)
Quarter: 2012Q1

REPORT INFORMATION
  Report Type: 
  Country: None (occurrence: None)
  Receive Date: 20120302
  Receipt Date: 20120217
  Transmission Date: 20120608
  Serious: Yes (Hospitalization)
  Sender: FDA-Public Use
  Company Number: US-MYLANLABS-2011S1016101

PATIENT
  Age: 43 Year
  Sex: Male

DRUGS (3)
  1. VALPROIC ACID [Concomitant]
     Indication: SCHIZOAFFECTIVE DISORDER BIPOLAR TYPE
  2. LAMISIL [Suspect]
     Indication: NAIL INFECTION
     Route: 065
  3. RISPERDAL CONSTA [Interacting]
     Dosage: 37.5MG
     Route: 065

REACTIONS (3)
  - PSYCHOTIC BEHAVIOUR [None]
  - PSYCHOTIC DISORDER [None]
  - DRUG INTERACTION [None]
